FAERS Safety Report 8760830 (Version 1)
Quarter: 2012Q4

REPORT INFORMATION
  Report Type: 
  Country: ZA (occurrence: ZA)
  Receive Date: 20120829
  Receipt Date: 20120829
  Transmission Date: 20130627
  Serious: Yes (Hospitalization)
  Sender: FDA-Public Use
  Company Number: ZA-ELI_LILLY_AND_COMPANY-ZA201208006935

PATIENT
  Age: 36 Year
  Sex: Male
  Weight: 62 kg

DRUGS (2)
  1. HUMALOG [Suspect]
     Indication: DIABETES MELLITUS
     Dosage: 14 u, tid
     Route: 058
     Dates: start: 20100801
  2. INSULIN NOS [Suspect]
     Indication: DIABETES MELLITUS
     Dosage: UNK, unknown
     Route: 058
     Dates: start: 20100801

REACTIONS (2)
  - Gastric ulcer [Recovered/Resolved]
  - Hyperglycaemia [Recovered/Resolved]
